FAERS Safety Report 9403700 (Version 1)
Quarter: 2013Q3

REPORT INFORMATION
  Report Type: Other
  Country: JP (occurrence: JP)
  Receive Date: 20130717
  Receipt Date: 20130717
  Transmission Date: 20140515
  Serious: Yes (Hospitalization, Other)
  Sender: FDA-Public Use
  Company Number: JP-BRISTOL-MYERS SQUIBB COMPANY-14389167

PATIENT
  Age: 75 Year
  Sex: Male

DRUGS (4)
  1. KENACORT-A INJ [Suspect]
     Indication: MACULAR OEDEMA
     Dosage: INTRAOCULAR(VITREOUS INJECTION) ON 05SEP07: 4MG?INTRAOCULAR(SUB-TENNON) ON 10SEP07: 12MG
     Route: 031
     Dates: start: 20070910, end: 20070910
  2. CRAVIT [Concomitant]
     Route: 031
     Dates: start: 20070906
  3. DICLOD [Concomitant]
     Route: 031
     Dates: start: 20070906
  4. FLUMETHOLON [Concomitant]
     Route: 031
     Dates: start: 20071011

REACTIONS (2)
  - Cytomegalovirus chorioretinitis [Recovering/Resolving]
  - Hypopyon [Recovering/Resolving]
